FAERS Safety Report 5653698-4 (Version None)
Quarter: 2008Q1

REPORT INFORMATION
  Report Type: 
  Country: None (occurrence: None)
  Receive Date: 20080204
  Receipt Date: 20071009
  Transmission Date: 20080703
  Serious: Yes (Other)
  Sender: FDA-Public Use
  Company Number: PHEH2007US13084

PATIENT
  Sex: Female

DRUGS (6)
  1. EXELON [Suspect]
     Indication: DEMENTIA
     Dosage: 4.6 MG, QD, TRANSDERMAL
     Route: 062
     Dates: start: 20070921, end: 20070928
  2. COUMADIN [Concomitant]
  3. SINEMET-CR (CARBIDOMA, LEVODOPA) [Concomitant]
  4. ATENOLOL [Concomitant]
  5. ENALAPRIL MALEATE [Concomitant]
  6. SEROQUEL [Concomitant]

REACTIONS (1)
  - HEART RATE INCREASED [None]
